FAERS Safety Report 5876428-X (Version None)
Quarter: 2008Q3

REPORT INFORMATION
  Report Type: 
  Country: None (occurrence: None)
  Receive Date: 20080908
  Receipt Date: 20080908
  Transmission Date: 20090109
  Serious: Yes (Hospitalization)
  Sender: FDA-Public Use
  Company Number: None

PATIENT
  Age: 60 Year
  Sex: Female
  Weight: 61.2356 kg

DRUGS (1)
  1. METRONIDAZOLE [Suspect]
     Indication: GASTROINTESTINAL INFECTION
     Dosage: ONE TABLET 2 X DAILY PO
     Route: 048
     Dates: start: 20080627, end: 20080707

REACTIONS (2)
  - CONVULSION [None]
  - IMPAIRED DRIVING ABILITY [None]
